FAERS Safety Report 9853739 (Version 2)
Quarter: 2014Q3

REPORT INFORMATION
  Report Type: Spontaneous
  Country: US (occurrence: US)
  Receive Date: 20140129
  Receipt Date: 20140904
  Transmission Date: 20150326
  Serious: Yes (Hospitalization)
  Sender: FDA-Public Use
  Company Number: US-JNJFOC-20140117115

PATIENT
  Age: 52 Year
  Sex: Male
  Weight: 69.4 kg

DRUGS (1)
  1. IMBRUVICA [Suspect]
     Active Substance: IBRUTINIB
     Indication: MANTLE CELL LYMPHOMA
     Route: 048
     Dates: start: 201312, end: 20140116

REACTIONS (5)
  - Monoplegia [Unknown]
  - Blood count abnormal [Recovering/Resolving]
  - Chills [Unknown]
  - Pain in extremity [Unknown]
  - Fungal infection [Unknown]

NARRATIVE: CASE EVENT DATE: 201312
